FAERS Safety Report 22304320 (Version 4)
Quarter: 2023Q2

REPORT INFORMATION
  Report Type: Spontaneous
  Country: US (occurrence: US)
  Receive Date: 20230510
  Receipt Date: 20230627
  Transmission Date: 20230722
  Serious: No
  Sender: FDA-Public Use
  Company Number: US-PFIZER INC-202300180524

PATIENT

DRUGS (1)
  1. GENOTROPIN [Suspect]
     Active Substance: SOMATROPIN
     Dosage: UNK

REACTIONS (4)
  - Circumstance or information capable of leading to device use error [Unknown]
  - Circumstance or information capable of leading to medication error [Unknown]
  - Liquid product physical issue [Unknown]
  - Device colour issue [Unknown]

NARRATIVE: CASE EVENT DATE: 20230101
